FAERS Safety Report 12523459 (Version 1)
Quarter: 2016Q3

REPORT INFORMATION
  Report Type: Spontaneous
  Country: US (occurrence: US)
  Receive Date: 20160703
  Receipt Date: 20160703
  Transmission Date: 20161109
  Serious: Yes (Hospitalization)
  Sender: FDA-Public Use
  Company Number: US-BEH-2016070721

PATIENT
  Age: 75 Year
  Sex: Male
  Weight: 65.76 kg

DRUGS (44)
  1. HIZENTRA [Suspect]
     Active Substance: HUMAN IMMUNOGLOBULIN G
     Dosage: 10 G, QW
     Route: 058
     Dates: start: 201606
  2. ARAVA [Concomitant]
     Active Substance: LEFLUNOMIDE
  3. LIDOCAINE/PRILOCAINE [Concomitant]
     Active Substance: LIDOCAINE\PRILOCAINE
  4. EPIPEN [Concomitant]
     Active Substance: EPINEPHRINE
  5. VENTOLIN [Concomitant]
     Active Substance: ALBUTEROL SULFATE
  6. XALATAN [Concomitant]
     Active Substance: LATANOPROST
  7. XOLAIR [Concomitant]
     Active Substance: OMALIZUMAB
  8. NEXIUM [Concomitant]
     Active Substance: ESOMEPRAZOLE MAGNESIUM
  9. ADVAIR HFA [Concomitant]
     Active Substance: FLUTICASONE PROPIONATE\SALMETEROL XINAFOATE
  10. PLAVIX [Concomitant]
     Active Substance: CLOPIDOGREL BISULFATE
  11. HYDROXYCHLOROQUINE [Concomitant]
     Active Substance: HYDROXYCHLOROQUINE
  12. COLLAGENASE SANTYL [Concomitant]
     Active Substance: COLLAGENASE CLOSTRIDIUM HISTOLYTICUM
  13. GENTAMYCIN                         /00047101/ [Concomitant]
     Active Substance: GENTAMICIN
  14. SODIUM CHLORIDE. [Concomitant]
     Active Substance: SODIUM CHLORIDE
  15. LYRICA [Concomitant]
     Active Substance: PREGABALIN
  16. NASONEX [Concomitant]
     Active Substance: MOMETASONE FUROATE
  17. SPIRIVA [Concomitant]
     Active Substance: TIOTROPIUM BROMIDE MONOHYDRATE
  18. CALCIUM [Concomitant]
     Active Substance: CALCIUM
  19. SYNTHROID [Concomitant]
     Active Substance: LEVOTHYROXINE SODIUM
  20. FLOVENT [Concomitant]
     Active Substance: FLUTICASONE PROPIONATE
  21. ATORVASTATIN [Concomitant]
     Active Substance: ATORVASTATIN
  22. VITAMIN D3 [Concomitant]
     Active Substance: CHOLECALCIFEROL
  23. ERYTHROMYCIN. [Concomitant]
     Active Substance: ERYTHROMYCIN
  24. FLOMAX [Concomitant]
     Active Substance: TAMSULOSIN HYDROCHLORIDE
  25. PROSCAR [Concomitant]
     Active Substance: FINASTERIDE
  26. ALBUTEROL                          /00139501/ [Concomitant]
     Active Substance: ALBUTEROL
  27. AMITRIPTYLINE [Concomitant]
     Active Substance: AMITRIPTYLINE
  28. SINGULAIR [Concomitant]
     Active Substance: MONTELUKAST SODIUM
  29. METFORMIN [Concomitant]
     Active Substance: METFORMIN HYDROCHLORIDE
  30. FOLIC ACID. [Concomitant]
     Active Substance: FOLIC ACID
  31. HIZENTRA [Suspect]
     Active Substance: HUMAN IMMUNOGLOBULIN G
     Indication: IMMUNODEFICIENCY COMMON VARIABLE
     Dosage: QW
     Route: 058
  32. DIPHENHYDRAMINE. [Concomitant]
     Active Substance: DIPHENHYDRAMINE
  33. CETIRIZINE [Concomitant]
     Active Substance: CETIRIZINE HYDROCHLORIDE
  34. FERROUS GLUCONATE [Concomitant]
     Active Substance: FERROUS GLUCONATE
  35. MUCINEX [Concomitant]
     Active Substance: GUAIFENESIN
  36. ACAPELLA [Concomitant]
  37. TIMOLOL. [Concomitant]
     Active Substance: TIMOLOL
  38. PREDNISONE. [Concomitant]
     Active Substance: PREDNISONE
  39. TRIAMCINOLONE [Concomitant]
     Active Substance: TRIAMCINOLONE
  40. HIZENTRA [Suspect]
     Active Substance: HUMAN IMMUNOGLOBULIN G
     Dosage: UNK
     Route: 058
     Dates: start: 20100830
  41. PROLIA [Concomitant]
     Active Substance: DENOSUMAB
  42. CENTRUM SILVER                     /02363801/ [Concomitant]
     Active Substance: MINERALS\VITAMINS
  43. HYDROXYZINE [Concomitant]
     Active Substance: HYDROXYZINE\HYDROXYZINE HYDROCHLORIDE
  44. TYLENOL [Concomitant]
     Active Substance: ACETAMINOPHEN

REACTIONS (2)
  - Oedema peripheral [Unknown]
  - Hospitalisation [Unknown]

NARRATIVE: CASE EVENT DATE: 201606
